FAERS Safety Report 9571542 (Version 2)
Quarter: 2013Q4

REPORT INFORMATION
  Report Type: Spontaneous
  Country: JP (occurrence: JP)
  Receive Date: 20131001
  Receipt Date: 20131001
  Transmission Date: 20140711
  Serious: Yes (Other)
  Sender: FDA-Public Use
  Company Number: JP-ASTRAZENECA-2013SE46787

PATIENT
  Age: 54 Year
  Sex: Male

DRUGS (3)
  1. DIPRIVAN INJECTION - KIT [Suspect]
     Indication: INDUCTION OF ANAESTHESIA
     Dosage: DOSE UNKNOWN
     Route: 042
  2. FENTANYL [Concomitant]
     Dosage: 50 MCG
  3. REMIFENTANIL [Concomitant]
     Indication: INDUCTION OF ANAESTHESIA

REACTIONS (1)
  - Status asthmaticus [Recovering/Resolving]
